FAERS Safety Report 9314185 (Version 1)
Quarter: 2013Q2

REPORT INFORMATION
  Report Type: Spontaneous
  Country: US (occurrence: None)
  Receive Date: 20130524
  Receipt Date: 20130524
  Transmission Date: 20140414
  Serious: No
  Sender: FDA-Public Use
  Company Number: None

PATIENT
  Age: 64 Year
  Sex: Female
  Weight: 56.7 kg

DRUGS (1)
  1. PROGESTERONE [Suspect]
     Indication: RELAXATION THERAPY
     Dosage: AT P.M.
     Route: 048

REACTIONS (3)
  - Arthritis [None]
  - Gastritis [None]
  - Inflammation [None]
